FAERS Safety Report 4833176-2 (Version None)
Quarter: 2005Q4

REPORT INFORMATION
  Report Type: 
  Country: None (occurrence: None)
  Receive Date: 20051117
  Receipt Date: 20051104
  Transmission Date: 20060501
  Serious: Yes (Hospitalization, Other)
  Sender: FDA-Public Use
  Company Number: KII-2005-0019544

PATIENT
  Age: 16 Year
  Sex: Female

DRUGS (3)
  1. MORPHINE SULFATE [Suspect]
     Dosage: SEE TEXT, ORAL
     Route: 048
  2. AMFETAMINE (AMFETAMINE) [Suspect]
  3. TETRAHYDROCANNABINOL (TETRAHYDROCANNABINOL) [Suspect]
     Indication: INTENTIONAL DRUG MISUSE

REACTIONS (5)
  - DEPRESSED LEVEL OF CONSCIOUSNESS [None]
  - OXYGEN SATURATION DECREASED [None]
  - POLYSUBSTANCE ABUSE [None]
  - SINUS TACHYCARDIA [None]
  - THERAPY NON-RESPONDER [None]
